FAERS Safety Report 24055943 (Version 3)
Quarter: 2025Q1

REPORT INFORMATION
  Report Type: Report from Study
  Country: US (occurrence: US)
  Receive Date: 20240705
  Receipt Date: 20250123
  Transmission Date: 20250409
  Serious: Yes (Death, Life-Threatening, Other)
  Sender: NOVARTIS
  Company Number: US-002147023-NVSC2024US071825

PATIENT
  Age: 83 Year
  Sex: Female

DRUGS (1)
  1. TASIGNA [Suspect]
     Active Substance: NILOTINIB
     Indication: Product used for unknown indication
     Route: 065

REACTIONS (4)
  - Leukaemia [Fatal]
  - Feeling abnormal [Unknown]
  - Deafness [Unknown]
  - Malaise [Unknown]

NARRATIVE: CASE EVENT DATE: 20240331
